FAERS Safety Report 9222023 (Version 1)
Quarter: 2013Q1

REPORT INFORMATION
  Report Type: Spontaneous
  Country: US (occurrence: None)
  Receive Date: 20120907
  Receipt Date: 20120907
  Transmission Date: 20140127
  Serious: No
  Sender: FDA-Public Use
  Company Number: TH-2012-00319

PATIENT
  Age: 51 Year
  Sex: Male

DRUGS (3)
  1. EGRIFTA [Suspect]
     Indication: LIPODYSTROPHY ACQUIRED
     Dates: start: 201201
  2. TESTOSTERONE (TESTOSTERONE) [Concomitant]
  3. ANTI RETRO VIRAL MEDICATION [Concomitant]

REACTIONS (2)
  - Arthralgia [None]
  - Red blood cell count increased [None]
